FAERS Safety Report 9153776 (Version 1)
Quarter: 2013Q1

REPORT INFORMATION
  Report Type: Spontaneous
  Country: US (occurrence: US)
  Receive Date: 20130311
  Receipt Date: 20130311
  Transmission Date: 20140127
  Serious: No
  Sender: FDA-Public Use
  Company Number: US-JNJFOC-20130105394

PATIENT
  Sex: 0

DRUGS (1)
  1. INVEGA SUSTENNA [Suspect]
     Indication: PSYCHOTIC DISORDER
     Route: 030

REACTIONS (2)
  - Somnolence [Unknown]
  - Mood swings [Unknown]
